FAERS Safety Report 12188625 (Version 2)
Quarter: 2016Q1

REPORT INFORMATION
  Report Type: Spontaneous
  Country: PT (occurrence: PT)
  Receive Date: 20160317
  Receipt Date: 20160322
  Transmission Date: 20160526
  Serious: Yes (Death, Other)
  Sender: FDA-Public Use
  Company Number: PT-009507513-1603PRT007488

PATIENT
  Age: 61 Year
  Sex: Male

DRUGS (3)
  1. KEYTRUDA [Suspect]
     Active Substance: PEMBROLIZUMAB
     Dosage: UNK, CYCLICAL
     Dates: end: 2016
  2. VEMURAFENIB [Concomitant]
     Active Substance: VEMURAFENIB
     Dosage: UNK
     Dates: start: 2016
  3. COBIMETINIB [Concomitant]
     Active Substance: COBIMETINIB
     Dosage: UNK
     Dates: start: 2016

REACTIONS (4)
  - Malignant neoplasm progression [Unknown]
  - Respiratory tract infection [Unknown]
  - Sepsis [Unknown]
  - Disseminated intravascular coagulation [Fatal]

NARRATIVE: CASE EVENT DATE: 2016
